FAERS Safety Report 7815375-0 (Version None)
Quarter: 2011Q4

REPORT INFORMATION
  Report Type: 
  Country: None (occurrence: None)
  Receive Date: 20111014
  Receipt Date: 20111004
  Transmission Date: 20120403
  Serious: Yes (Life-Threatening, Other)
  Sender: FDA-Public Use
  Company Number: FR-BRISTOL-MYERS SQUIBB COMPANY-16133886

PATIENT
  Sex: Male

DRUGS (1)
  1. ONGLYZA [Suspect]
     Route: 048

REACTIONS (2)
  - HEPATITIS [None]
  - RASH [None]
